FAERS Safety Report 5379353-6 (Version None)
Quarter: 2007Q3

REPORT INFORMATION
  Report Type: 
  Country: None (occurrence: None)
  Receive Date: 20070705
  Receipt Date: 20070625
  Transmission Date: 20080115
  Serious: Yes (Disabling, Other)
  Sender: FDA-Public Use
  Company Number: CH-PFIZER INC-2007045962

PATIENT
  Sex: Male
  Weight: 92 kg

DRUGS (3)
  1. SUTENT [Suspect]
     Indication: METASTATIC RENAL CELL CARCINOMA
     Route: 048
  2. ZESTRIL [Concomitant]
     Route: 048
  3. HYGROTON [Concomitant]
     Route: 048

REACTIONS (8)
  - ABDOMINAL PAIN [None]
  - ANOREXIA [None]
  - CHOLESTASIS [None]
  - HEPATIC ENZYME ABNORMAL [None]
  - HYPERHIDROSIS [None]
  - INFECTION [None]
  - MALAISE [None]
  - THROMBOCYTOPENIA [None]
